FAERS Safety Report 9630150 (Version 1)
Quarter: 2013Q4

REPORT INFORMATION
  Report Type: Spontaneous
  Country: US (occurrence: US)
  Receive Date: 20131017
  Receipt Date: 20131017
  Transmission Date: 20140711
  Serious: Yes (Death, Other)
  Sender: FDA-Public Use
  Company Number: US-BAXTER-2013BAX040056

PATIENT
  Age: 54 Year
  Sex: 0

DRUGS (6)
  1. POTASSIUM CHLORIDE IN 5% DEXTROSE AND SODIUM CHLORIDE INJECTION , USP [Suspect]
     Indication: PRODUCT USED FOR UNKNOWN INDICATION
     Route: 065
     Dates: start: 20131004, end: 20131004
  2. LEVOPHED [Suspect]
     Indication: SUPRAVENTRICULAR TACHYCARDIA
     Route: 065
     Dates: start: 20131004, end: 20131004
  3. LEVOPHED [Suspect]
     Indication: VENTRICULAR TACHYCARDIA
  4. LEVOPHED [Suspect]
     Indication: NODAL RHYTHM
  5. ASPIRIN [Concomitant]
     Indication: PRODUCT USED FOR UNKNOWN INDICATION
     Route: 048
  6. TYLENOL [Concomitant]
     Indication: PRODUCT USED FOR UNKNOWN INDICATION
     Route: 048

REACTIONS (7)
  - Death [Fatal]
  - Supraventricular tachycardia [Unknown]
  - Ventricular tachycardia [Unknown]
  - Grand mal convulsion [Unknown]
  - Nodal rhythm [Unknown]
  - Pyrexia [Unknown]
  - Hypotension [Unknown]
